FAERS Safety Report 8370435-3 (Version None)
Quarter: 2012Q2

REPORT INFORMATION
  Report Type: 
  Country: None (occurrence: None)
  Receive Date: 20120518
  Receipt Date: 20120514
  Transmission Date: 20120825
  Serious: Yes (Other)
  Sender: FDA-Public Use
  Company Number: US-CELGENEUS-163-21880-12051755

PATIENT
  Sex: Male
  Weight: 95.34 kg

DRUGS (19)
  1. NITROGLYCERIN [Concomitant]
     Route: 065
  2. SENNA-MINT WAF [Concomitant]
     Route: 065
  3. FUROSEMIDE [Concomitant]
     Route: 065
  4. PRAVASTATIN [Concomitant]
     Route: 065
  5. LOVAZA [Concomitant]
     Route: 065
  6. BRILINTA [Concomitant]
     Route: 065
  7. MAGNESIUM OXIDE [Concomitant]
     Route: 065
  8. MULTI-VITAMINS [Concomitant]
     Route: 065
  9. REVLIMID [Suspect]
     Indication: MULTIPLE MYELOMA
     Dosage: 15 MILLIGRAM
     Route: 048
     Dates: start: 20120201
  10. ZOMETA [Concomitant]
     Route: 065
  11. NORCO [Concomitant]
     Route: 065
  12. AMIODARONE HCL [Concomitant]
     Route: 065
  13. BENTYL [Concomitant]
     Route: 065
  14. LEVEMIR [Concomitant]
     Route: 065
  15. VITAMIN D [Concomitant]
     Route: 065
  16. SPIRONOLACTONE [Concomitant]
     Route: 065
  17. NOVOLOG [Concomitant]
     Route: 065
  18. RANITIDINE [Concomitant]
     Route: 065
  19. ASPIRIN [Concomitant]
     Route: 065

REACTIONS (2)
  - URINARY BLADDER HAEMORRHAGE [None]
  - MYOCARDIAL INFARCTION [None]
